FAERS Safety Report 6992588-1 (Version None)
Quarter: 2010Q3

REPORT INFORMATION
  Report Type: 
  Country: None (occurrence: None)
  Receive Date: 20100917
  Receipt Date: 20100908
  Transmission Date: 20110219
  Serious: Yes (Life-Threatening, Hospitalization)
  Sender: FDA-Public Use
  Company Number: NL-ROCHE-726478

PATIENT
  Sex: Female

DRUGS (1)
  1. XELODA [Suspect]
     Indication: GASTRIC CANCER
     Route: 048
     Dates: start: 20100810, end: 20100820

REACTIONS (1)
  - DIHYDROPYRIMIDINE DEHYDROGENASE DEFICIENCY [None]
